FAERS Safety Report 7105748-6 (Version None)
Quarter: 2010Q4

REPORT INFORMATION
  Report Type: 
  Country: None (occurrence: None)
  Receive Date: 20101116
  Receipt Date: 20101110
  Transmission Date: 20110411
  Serious: Yes (Hospitalization)
  Sender: FDA-Public Use
  Company Number: CA-ABBOTT-10P-028-0684501-00

PATIENT
  Sex: Female
  Weight: 68.1 kg

DRUGS (4)
  1. HUMIRA [Suspect]
     Indication: RHEUMATOID ARTHRITIS
     Route: 058
     Dates: start: 20100324
  2. ANUCET [Concomitant]
     Indication: PAIN
     Dosage: PRN
     Route: 048
  3. PREDNISONE [Concomitant]
     Indication: ARTHRALGIA
     Dosage: 5 MG 3  TAB QD
     Route: 048
  4. PILL (NAME UNKNOWN) [Concomitant]
     Indication: BLOOD PRESSURE
     Dosage: 1 TAB QD
     Route: 048

REACTIONS (3)
  - ILL-DEFINED DISORDER [None]
  - MOBILITY DECREASED [None]
  - RHEUMATOID ARTHRITIS [None]
